FAERS Safety Report 21522384 (Version 1)
Quarter: 2022Q4

REPORT INFORMATION
  Report Type: Spontaneous
  Country: US (occurrence: US)
  Receive Date: 20221028
  Receipt Date: 20221028
  Transmission Date: 20230112
  Serious: No
  Sender: FDA-Public Use
  Company Number: US-PADAGIS-2022PAD00814

PATIENT

DRUGS (1)
  1. CICLOPIROX [Suspect]
     Active Substance: CICLOPIROX
     Indication: Fungal foot infection
     Dosage: APPLIED IT DAILY AT BEDTIME
     Route: 061
     Dates: start: 20211101, end: 2022

REACTIONS (2)
  - Onychoclasis [Unknown]
  - Drug ineffective [Unknown]

NARRATIVE: CASE EVENT DATE: 20211101
